FAERS Safety Report 23247845 (Version 1)
Quarter: 2023Q4

REPORT INFORMATION
  Report Type: Spontaneous
  Country: US (occurrence: None)
  Receive Date: 20231130
  Receipt Date: 20231130
  Transmission Date: 20240109
  Serious: Yes (Hospitalization, Other)
  Sender: FDA-Public Use
  Company Number: None

PATIENT
  Age: 46 Year
  Sex: Male
  Weight: 101.6 kg

DRUGS (2)
  1. AYVAKIT [Suspect]
     Active Substance: AVAPRITINIB
     Indication: Systemic mastocytosis
     Dosage: FREQUENCY : DAILY;?
     Route: 048
     Dates: start: 20231118
  2. JARDIANCE [Concomitant]
     Active Substance: EMPAGLIFLOZIN

REACTIONS (9)
  - Abdominal distension [None]
  - Constipation [None]
  - Hiccups [None]
  - Impaired gastric emptying [None]
  - Euglycaemic diabetic ketoacidosis [None]
  - Ascites [None]
  - Oedema peripheral [None]
  - Hypophagia [None]
  - Chills [None]

NARRATIVE: CASE EVENT DATE: 20231127
